FAERS Safety Report 8072033-8 (Version None)
Quarter: 2011Q4

REPORT INFORMATION
  Report Type: 
  Country: None (occurrence: None)
  Receive Date: 20111221
  Receipt Date: 20110815
  Transmission Date: 20120403
  Serious: Yes (Other)
  Sender: FDA-Public Use
  Company Number: PHHY2011US46067

PATIENT
  Age: 81 Year
  Sex: Male
  Weight: 70.9 kg

DRUGS (4)
  1. FAMOTIDINE [Concomitant]
  2. WARFARIN SODIUM [Concomitant]
  3. EXJADE [Suspect]
     Indication: IRON OVERLOAD
     Dosage: 1500 MG, DAILY, ORAL
     Route: 048
     Dates: start: 20100922
  4. EXJADE [Suspect]
     Indication: MYELODYSPLASTIC SYNDROME
     Dosage: 1500 MG, DAILY, ORAL
     Route: 048
     Dates: start: 20100922

REACTIONS (1)
  - PROTEINURIA [None]
